FAERS Safety Report 8742545 (Version 2)
Quarter: 2012Q4

REPORT INFORMATION
  Report Type: 
  Country: US (occurrence: US)
  Receive Date: 20120824
  Receipt Date: 20121107
  Transmission Date: 20130627
  Serious: Yes (Other)
  Sender: FDA-Public Use
  Company Number: US-ASTRAZENECA-2012SE21719

PATIENT
  Age: 73 Year
  Sex: Male

DRUGS (5)
  1. SYMBICORT PMDI [Suspect]
     Dosage: 160/4.5 MCG, UNKNOWN
     Route: 055
  2. NEXIUM [Suspect]
     Route: 048
  3. NEXIUM [Suspect]
     Route: 048
  4. OTHER MEDICATIONS [Suspect]
  5. ADVAIR [Concomitant]

REACTIONS (3)
  - Ulcer haemorrhage [Unknown]
  - Drug intolerance [Unknown]
  - Adverse event [Unknown]
